FAERS Safety Report 11995312 (Version 1)
Quarter: 2016Q1

REPORT INFORMATION
  Report Type: Spontaneous
  Country: IT (occurrence: IT)
  Receive Date: 20160203
  Receipt Date: 20160203
  Transmission Date: 20160526
  Serious: Yes (Death, Hospitalization)
  Sender: FDA-Public Use
  Company Number: IT-CONCORDIA PHARMACEUTICALS INC.-CO-KX-IT-2015-001

PATIENT
  Age: 84 Year
  Sex: Male

DRUGS (4)
  1. KAYEXALATE [Suspect]
     Active Substance: SODIUM POLYSTYRENE SULFONATE
     Indication: HYPERKALAEMIA
     Dosage: 1 UNIT
     Route: 048
     Dates: start: 20140101, end: 20141010
  2. TRIATEC [Concomitant]
     Active Substance: RAMIPRIL
  3. ROCALTROL [Concomitant]
     Active Substance: CALCITRIOL
  4. PREFOLIC [Concomitant]
     Active Substance: LEUCOVORIN CALCIUM

REACTIONS (4)
  - Rhabdomyolysis [None]
  - Paraparesis [None]
  - Hypokalaemia [None]
  - Medication error [None]

NARRATIVE: CASE EVENT DATE: 20141010
